FAERS Safety Report 20230369 (Version 1)
Quarter: 2021Q4

REPORT INFORMATION
  Report Type: Report from Study
  Country: BR (occurrence: BR)
  Receive Date: 20211227
  Receipt Date: 20211227
  Transmission Date: 20220303
  Serious: Yes (Other)
  Sender: FDA-Public Use
  Company Number: BR-ABBVIE-21K-020-4209273-00

PATIENT
  Sex: Female
  Weight: 70 kg

DRUGS (1)
  1. HUMIRA [Suspect]
     Active Substance: ADALIMUMAB
     Indication: Rheumatoid arthritis
     Route: 058
     Dates: start: 20170502, end: 2021

REACTIONS (4)
  - Haemorrhagic disorder [Recovered/Resolved]
  - Gastric ulcer perforation [Recovered/Resolved]
  - Asthenia [Unknown]
  - Arthritis [Not Recovered/Not Resolved]
